FAERS Safety Report 21103256 (Version 1)
Quarter: 2022Q3

REPORT INFORMATION
  Report Type: Spontaneous
  Country: CA (occurrence: CA)
  Receive Date: 20220720
  Receipt Date: 20220720
  Transmission Date: 20221026
  Serious: Yes (Other)
  Sender: FDA-Public Use
  Company Number: CA-OCTA-HAPL01522CA

PATIENT
  Age: 62 Year

DRUGS (1)
  1. HUMAN IMMUNOGLOBULIN G [Suspect]
     Active Substance: HUMAN IMMUNOGLOBULIN G
     Indication: Chronic inflammatory demyelinating polyradiculoneuropathy
     Route: 042

REACTIONS (5)
  - Hypervolaemia [Unknown]
  - Limb discomfort [Unknown]
  - Oedema peripheral [Unknown]
  - Pulmonary oedema [Unknown]
  - White blood cell count decreased [Unknown]
